FAERS Safety Report 4633464-9 (Version None)
Quarter: 2005Q2

REPORT INFORMATION
  Report Type: 
  Country: None (occurrence: None)
  Receive Date: 20050412
  Receipt Date: 20050329
  Transmission Date: 20051028
  Serious: Yes (Death, Hospitalization, Other)
  Sender: FDA-Public Use
  Company Number: 2005-01-1855

PATIENT
  Age: 24 Year
  Sex: Female
  Weight: 74.8435 kg

DRUGS (7)
  1. TEMODAR [Suspect]
     Indication: ANAPLASTIC ASTROCYTOMA
     Dosage: 75MG/M2 QDX6W ORAL
     Route: 048
     Dates: start: 20020301
  2. ATIVAN [Suspect]
     Indication: CONVULSION
     Dosage: 1 MG HS PRN
  3. DECADRON [Suspect]
     Dosage: 4 MG BID
     Dates: start: 20020101
  4. VIOXX [Concomitant]
  5. ZANTAC [Concomitant]
  6. SEPTRA DS [Concomitant]
  7. RADIATION THERAPY [Concomitant]

REACTIONS (34)
  - ABDOMINAL PAIN UPPER [None]
  - ACIDOSIS [None]
  - APNOEA [None]
  - ASTHENIA [None]
  - BLOOD ALBUMIN DECREASED [None]
  - BLOOD CREATININE INCREASED [None]
  - BONE MARROW DEPRESSION [None]
  - CANDIDIASIS [None]
  - CATHETER RELATED INFECTION [None]
  - CATHETER SITE INFECTION [None]
  - COMA [None]
  - CONVULSION [None]
  - DEPRESSION [None]
  - DIABETIC KETOACIDOSIS [None]
  - DIARRHOEA [None]
  - DISEASE PROGRESSION [None]
  - DYSPHAGIA [None]
  - FEBRILE NEUTROPENIA [None]
  - FLUID OVERLOAD [None]
  - GENERALISED OEDEMA [None]
  - HYPOKALAEMIA [None]
  - HYPOMAGNESAEMIA [None]
  - HYPOTENSION [None]
  - INSOMNIA [None]
  - LETHARGY [None]
  - MOVEMENT DISORDER [None]
  - MUSCLE TWITCHING [None]
  - MUSCULAR WEAKNESS [None]
  - NAUSEA [None]
  - PANCYTOPENIA [None]
  - PLEURAL EFFUSION [None]
  - SEPTIC SHOCK [None]
  - SIMPLE PARTIAL SEIZURES [None]
  - TACHYCARDIA [None]
